FAERS Safety Report 4659120-9 (Version None)
Quarter: 2005Q2

REPORT INFORMATION
  Report Type: 
  Country: None (occurrence: None)
  Receive Date: 20050511
  Receipt Date: 20050223
  Transmission Date: 20051028
  Serious: Yes (Hospitalization)
  Sender: FDA-Public Use
  Company Number: 200510621JP

PATIENT
  Age: 81 Year
  Sex: Female
  Weight: 40 kg

DRUGS (21)
  1. KETEK [Suspect]
     Indication: NASOPHARYNGITIS
     Route: 048
     Dates: start: 20041221, end: 20041225
  2. WARFARIN SODIUM [Suspect]
     Indication: MITRAL VALVE REPLACEMENT
     Route: 048
     Dates: end: 20041229
  3. WARFARIN SODIUM [Suspect]
     Indication: PROPHYLAXIS
     Route: 048
     Dates: end: 20041229
  4. DIGOSIN [Concomitant]
     Indication: ATRIAL FIBRILLATION
     Route: 048
  5. ALDACTONE [Concomitant]
     Route: 048
     Dates: end: 20041230
  6. KELNAC [Concomitant]
     Route: 048
     Dates: end: 20041230
  7. COMELIAN [Concomitant]
     Route: 048
  8. FLUITRAN [Concomitant]
     Route: 048
     Dates: end: 20041231
  9. RENIVACE [Concomitant]
     Route: 048
  10. MUCODYNE [Concomitant]
     Indication: NASOPHARYNGITIS
     Route: 048
     Dates: start: 20041221, end: 20041225
  11. BISOLVON [Concomitant]
     Indication: NASOPHARYNGITIS
     Route: 048
     Dates: start: 20041221, end: 20041225
  12. TRANSAMIN [Concomitant]
     Indication: NASOPHARYNGITIS
     Route: 048
     Dates: start: 20041221, end: 20041225
  13. PL GRAN. [Concomitant]
     Indication: NASOPHARYNGITIS
     Route: 048
     Dates: start: 20041221, end: 20041225
  14. OMEPRAL [Concomitant]
     Indication: UPPER GASTROINTESTINAL HAEMORRHAGE
     Dosage: DOSE: 2V
     Route: 041
     Dates: start: 20041230, end: 20050103
  15. TAKEPRON [Concomitant]
     Indication: UPPER GASTROINTESTINAL HAEMORRHAGE
     Route: 048
     Dates: end: 20050112
  16. MUCOSTA [Concomitant]
     Route: 048
     Dates: start: 20041231
  17. MUCODYNE [Concomitant]
     Indication: NASOPHARYNGITIS
     Route: 048
     Dates: start: 20041221, end: 20041225
  18. BISOLVON [Concomitant]
     Indication: NASOPHARYNGITIS
     Route: 048
     Dates: start: 20041221, end: 20041225
  19. TRANSAMIN [Concomitant]
     Indication: NASOPHARYNGITIS
     Route: 048
     Dates: start: 20041221, end: 20041225
  20. PL GRAN. [Concomitant]
     Indication: NASOPHARYNGITIS
     Route: 048
     Dates: start: 20041221, end: 20041225
  21. WARFARIN SODIUM [Concomitant]
     Route: 048
     Dates: start: 20050105, end: 20050113

REACTIONS (2)
  - ANAEMIA [None]
  - GASTRIC ULCER HAEMORRHAGE [None]
